FAERS Safety Report 11458170 (Version 1)
Quarter: 2015Q3

REPORT INFORMATION
  Report Type: Spontaneous
  Country: US (occurrence: US)
  Receive Date: 20150904
  Receipt Date: 20150904
  Transmission Date: 20151125
  Serious: Yes (Other)
  Sender: FDA-Public Use
  Company Number: US-WEST-WARD PHARMACEUTICALS CORP.-US-H14001-15-01630

PATIENT
  Age: 49 Year
  Sex: Male

DRUGS (2)
  1. PHENYTOIN. [Suspect]
     Active Substance: PHENYTOIN
     Indication: EPILEPSY
     Route: 065
  2. NONI JUICE [Suspect]
     Active Substance: NONI FRUIT JUICE
     Indication: PRODUCT USED FOR UNKNOWN INDICATION
     Route: 065

REACTIONS (3)
  - Anticonvulsant drug level below therapeutic [Recovering/Resolving]
  - Convulsive threshold lowered [Recovering/Resolving]
  - Herbal interaction [Recovering/Resolving]
